FAERS Safety Report 15617128 (Version 2)
Quarter: 2019Q1

REPORT INFORMATION
  Report Type: Spontaneous
  Country: BR (occurrence: BR)
  Receive Date: 20181114
  Receipt Date: 20190128
  Transmission Date: 20190417
  Serious: Yes (Other)
  Sender: FDA-Public Use
  Company Number: BR-PFIZER INC-2018376369

PATIENT
  Sex: Female

DRUGS (1)
  1. LORAX//LORAZEPAM [Suspect]
     Active Substance: LORAZEPAM
     Dosage: 1 MG, UNK
     Dates: start: 1998

REACTIONS (2)
  - Insomnia [Unknown]
  - Cataract [Unknown]
